FAERS Safety Report 8115768-0 (Version None)
Quarter: 2012Q1

REPORT INFORMATION
  Report Type: 
  Country: None (occurrence: None)
  Receive Date: 20120206
  Receipt Date: 20120125
  Transmission Date: 20120608
  Serious: Yes (Other)
  Sender: FDA-Public Use
  Company Number: US-ROCHE-1036777

PATIENT
  Sex: Female

DRUGS (9)
  1. CLONAZEPAM [Suspect]
     Indication: PRODUCT USED FOR UNKNOWN INDICATION
  2. LIPITOR [Concomitant]
  3. RAMIPRIL [Concomitant]
  4. ASPIRIN [Concomitant]
  5. PAROXETINE [Concomitant]
  6. IRON [Concomitant]
  7. PLAVIX [Concomitant]
  8. PREDNISONE TAB [Concomitant]
  9. METOPROLOL TARTRATE [Concomitant]

REACTIONS (1)
  - MYOCARDIAL INFARCTION [None]
